FAERS Safety Report 14914019 (Version 1)
Quarter: 2018Q2

REPORT INFORMATION
  Report Type: Spontaneous
  Country: GR (occurrence: GR)
  Receive Date: 20180518
  Receipt Date: 20180518
  Transmission Date: 20180711
  Serious: Yes (Other)
  Sender: FDA-Public Use
  Company Number: GR-TEVA-2018-GR-894606

PATIENT
  Age: 81 Year
  Sex: Female

DRUGS (5)
  1. ATORSTAT 20MG [Concomitant]
  2. AMLODIPINE [Suspect]
     Active Substance: AMLODIPINE BESYLATE
     Indication: HYPERTENSION
     Route: 048
     Dates: start: 20180309, end: 20180310
  3. OLMETEC PLUS 20MG/12,5MG [Concomitant]
  4. ONE-ALPHA 1 MCG [Concomitant]
  5. GLUCOPLUS [Concomitant]

REACTIONS (4)
  - Blindness transient [Recovered/Resolved]
  - Blood pressure increased [Recovered/Resolved]
  - Tachyarrhythmia [Recovered/Resolved]
  - Pollakiuria [Recovered/Resolved]

NARRATIVE: CASE EVENT DATE: 20180310
